FAERS Safety Report 9635987 (Version 2)
Quarter: 2014Q1

REPORT INFORMATION
  Report Type: Report from Study
  Country: RU (occurrence: RU)
  Receive Date: 20131021
  Receipt Date: 20140129
  Transmission Date: 20141002
  Serious: Yes (Hospitalization, Other)
  Sender: FDA-Public Use
  Company Number: RU-GILEAD-2013-0085535

PATIENT
  Age: 0 Day
  Sex: Male
  Weight: 3.55 kg

DRUGS (7)
  1. EMTRICITABINE/TENOFOVIR DISOPROXIL FUMARATE [Suspect]
     Indication: HIV INFECTION
     Dosage: 1 DF, QD
     Route: 064
     Dates: end: 20121025
  2. KIVEXA [Suspect]
     Indication: HIV INFECTION
     Dosage: 1 DF, QD
     Route: 064
     Dates: end: 20130620
  3. RILPIVIRINE [Suspect]
     Indication: HIV INFECTION
     Dosage: 25 MG, QD
     Route: 064
     Dates: end: 20121025
  4. RILPIVIRINE [Suspect]
     Dosage: UNK
  5. KALETRA [Concomitant]
     Indication: HIV INFECTION
     Dosage: 2 DF, QD
     Route: 064
     Dates: start: 20121026
  6. KALETRA [Concomitant]
     Dosage: 3 DF, BID
     Dates: start: 20130423
  7. EPZICOM [Concomitant]
     Indication: HIV INFECTION

REACTIONS (2)
  - Neonatal asphyxia [Recovered/Resolved]
  - Foetal exposure during pregnancy [Recovered/Resolved]
